FAERS Safety Report 9148831 (Version 1)
Quarter: 2013Q1

REPORT INFORMATION
  Report Type: Spontaneous
  Country: US (occurrence: None)
  Receive Date: 20130227
  Receipt Date: 20130227
  Transmission Date: 20140127
  Serious: Yes (Hospitalization)
  Sender: FDA-Public Use
  Company Number: None

PATIENT
  Sex: Male
  Weight: 72.58 kg

DRUGS (1)
  1. TAMIFLU [Suspect]
     Indication: INFLUENZA
     Dosage: TWICE DAILY PO
     Route: 048
     Dates: start: 20130124, end: 20130126

REACTIONS (7)
  - Chest pain [None]
  - Chest discomfort [None]
  - Insomnia [None]
  - Troponin increased [None]
  - Migraine [None]
  - Dyspnoea [None]
  - Malaise [None]
